FAERS Safety Report 15192678 (Version 14)
Quarter: 2019Q3

REPORT INFORMATION
  Report Type: Spontaneous
  Country: DE (occurrence: DE)
  Receive Date: 20180725
  Receipt Date: 20190829
  Transmission Date: 20191004
  Serious: Yes (Death, Life-Threatening, Hospitalization, Other)
  Sender: FDA-Public Use
  Company Number: DE-AUROBINDO-AUR-APL-2017-04881

PATIENT

DRUGS (50)
  1. DOMPERIDONE [Suspect]
     Active Substance: DOMPERIDONE
     Indication: PRODUCT USED FOR UNKNOWN INDICATION
     Dosage: 20 MILLIGRAM, ONCE A DAY (10 MG, BID) (ALSO REPORTED AS 10 MG, BID)
     Route: 048
  2. DISTRANEURIN [Suspect]
     Active Substance: CLOMETHIAZOLE
     Indication: PREMEDICATION
     Dosage: UNK, 1 OT, 1 DAY, PRN
     Route: 048
     Dates: start: 2009
  3. VALPROIC ACID. [Suspect]
     Active Substance: VALPROIC ACID
     Dosage: 600 MILLIGRAM, ONCE A DAY (300 MG, BID)
     Route: 048
     Dates: end: 200901
  4. MOVICOL [Concomitant]
     Active Substance: POLYETHYLENE GLYCOL 3350\POTASSIUM CHLORIDE\SODIUM BICARBONATE\SODIUM CHLORIDE
     Indication: PRODUCT USED FOR UNKNOWN INDICATION
     Dosage: 1 DOSAGE FORM, ONCE A DAY
     Route: 065
  5. CLOZAPINE TABLETS [Suspect]
     Active Substance: CLOZAPINE
     Dosage: 75 MILLIGRAM, ONCE A DAY
     Route: 065
     Dates: start: 20090111
  6. CARBIDOPA;LEVODOPA [Suspect]
     Active Substance: CARBIDOPA\LEVODOPA
     Dosage: 200 MILLIGRAM, ONCE A DAY
     Route: 048
  7. NOVAMINSULFON [Concomitant]
     Active Substance: METAMIZOLE
     Dosage: 80 GTT DROPS (20 DROP, QID)
     Route: 065
  8. CLOZAPINE TABLETS [Suspect]
     Active Substance: CLOZAPINE
     Dosage: 225 MILLIGRAM, ONCE A DAY
     Route: 048
     Dates: start: 20090111
  9. DOMPERIDONE [Suspect]
     Active Substance: DOMPERIDONE
     Dosage: 10 MILLIGRAM, ONCE A DAY
     Route: 048
  10. TRAMAL [Concomitant]
     Active Substance: TRAMADOL
     Indication: PRODUCT USED FOR UNKNOWN INDICATION
     Dosage: UNK
     Route: 042
  11. NACOM [Concomitant]
     Active Substance: CARBIDOPA\LEVODOPA
     Dosage: 93.75 MILLIGRAM, ONCE A DAY
     Route: 065
  12. STALEVO [Suspect]
     Active Substance: CARBIDOPA\ENTACAPONE\LEVODOPA
     Indication: PRODUCT USED FOR UNKNOWN INDICATION
     Dosage: 150 MILLIGRAM, ONCE A DAY (50 MILLIGRAM, TID)
     Route: 065
  13. STALEVO [Suspect]
     Active Substance: CARBIDOPA\ENTACAPONE\LEVODOPA
     Dosage: 6 DOSAGE FORM, ONCE A DAY
     Route: 048
  14. PIPAMPERONE [Suspect]
     Active Substance: PIPAMPERONE
     Indication: PRODUCT USED FOR UNKNOWN INDICATION
     Dosage: 40 MILLIGRAM, ONCE A DAY
     Route: 065
  15. CARBIDOPA;LEVODOPA [Suspect]
     Active Substance: CARBIDOPA\LEVODOPA
     Dosage: 3 MILLIGRAM, TWO TIMES A DAY
     Route: 065
  16. LEVODOPA [Suspect]
     Active Substance: LEVODOPA
     Indication: PREMEDICATION
     Dosage: 93.75 MILLIGRAM, ONCE A DAY
     Route: 048
  17. RIVASTIGMINE. [Suspect]
     Active Substance: RIVASTIGMINE
     Dosage: 1 MILLIGRAM, ONCE A DAY, 3-1.5-1.5 MG
     Route: 048
  18. RIVASTIGMINE. [Suspect]
     Active Substance: RIVASTIGMINE
     Dosage: 3 MILLIGRAM, TWO TIMES A DAY
     Route: 065
  19. CLOZAPINE TABLETS [Suspect]
     Active Substance: CLOZAPINE
     Dosage: 25 MILLIGRAM, ONCE A DAY
     Route: 048
  20. CLOZAPINE TABLETS [Suspect]
     Active Substance: CLOZAPINE
     Dosage: 12.5 MILLIGRAM, ONCE A DAY
     Route: 048
  21. OMEPRAZOLE. [Suspect]
     Active Substance: OMEPRAZOLE
     Dosage: 80 MILLIGRAM, ONCE A DAY (ALSO REPORTED AS 40 MG, BID)
     Route: 065
  22. EXELON [Suspect]
     Active Substance: RIVASTIGMINE TARTRATE
     Dosage: 6 MILLIGRAM, ONCE A DAY
     Route: 048
  23. STALEVO [Suspect]
     Active Substance: CARBIDOPA\ENTACAPONE\LEVODOPA
     Dosage: 100 MILLIGRAM, ONCE A DAY
     Route: 048
     Dates: end: 200909
  24. NOVAMINSULFON [Concomitant]
     Active Substance: METAMIZOLE
     Indication: PRODUCT USED FOR UNKNOWN INDICATION
     Dosage: 80 GTT DROPS (20 DROP, QID)
     Route: 065
  25. RIVASTIGMINE. [Suspect]
     Active Substance: RIVASTIGMINE
     Indication: PARKINSON^S DISEASE
     Dosage: 6 MILLIGRAM, ONCE A DAY, 3 MG, BID
     Route: 048
  26. CLOZAPINE TABLETS [Suspect]
     Active Substance: CLOZAPINE
     Indication: PRODUCT USED FOR UNKNOWN INDICATION
     Dosage: 62.5 MILLIGRAM, ONCE A DAY
     Route: 048
  27. STALEVO [Suspect]
     Active Substance: CARBIDOPA\ENTACAPONE\LEVODOPA
     Dosage: 600 MILLIGRAM, ONCE A DAY
     Route: 048
  28. STALEVO [Suspect]
     Active Substance: CARBIDOPA\ENTACAPONE\LEVODOPA
     Dosage: 250 MILLIGRAM, ONCE A DAY
     Route: 048
     Dates: start: 20090111
  29. VALPROIC ACID. [Suspect]
     Active Substance: VALPROIC ACID
     Indication: PRODUCT USED FOR UNKNOWN INDICATION
     Dosage: 300 MILLIGRAM, ONCE A DAY
     Route: 048
  30. CARBIDOPA. [Suspect]
     Active Substance: CARBIDOPA
     Indication: PRODUCT USED FOR UNKNOWN INDICATION
     Dosage: 200 MILLIGRAM, ONCE A DAY
     Route: 048
  31. LACTULOSE. [Concomitant]
     Active Substance: LACTULOSE
     Indication: PRODUCT USED FOR UNKNOWN INDICATION
     Dosage: 20 MILLILITER, ONCE A DAY
     Route: 065
  32. NOVAMINSULFON [Concomitant]
     Active Substance: METAMIZOLE
     Dosage: 1 DOSAGE FORM
     Route: 065
  33. NACOM [Concomitant]
     Active Substance: CARBIDOPA\LEVODOPA
     Dosage: 200 MILLIGRAM, DAILY
     Route: 065
  34. KALIUM [Concomitant]
     Active Substance: POTASSIUM CHLORIDE
     Indication: PRODUCT USED FOR UNKNOWN INDICATION
     Dosage: UNK, ONCE A DAY, 1 (UNKNOWN UNITS)
     Route: 065
  35. POTASSIUM ADIPATE [Concomitant]
     Active Substance: POTASSIUM ADIPATE
     Indication: PRODUCT USED FOR UNKNOWN INDICATION
     Dosage: UNK
     Route: 065
  36. DISTRANEURIN [Suspect]
     Active Substance: CLOMETHIAZOLE
     Dosage: UNK UNK, ONCE A DAY, 1 (UNKNOWN UNITS)
     Route: 065
  37. CARBIDOPA. [Suspect]
     Active Substance: CARBIDOPA
     Dosage: 3 MILLIGRAM, TWO TIMES A DAY
     Route: 065
  38. ERGENYL [Concomitant]
     Active Substance: VALPROIC ACID
     Indication: PRODUCT USED FOR UNKNOWN INDICATION
     Dosage: 600 MILLIGRAM, ONCE A DAY
     Route: 065
  39. ERGENYL [Concomitant]
     Active Substance: VALPROIC ACID
     Dosage: 300 MILLIGRAM, ONCE A DAY
     Route: 065
     Dates: start: 20090111
  40. NACOM [Concomitant]
     Active Substance: CARBIDOPA\LEVODOPA
     Indication: PREMEDICATION
     Dosage: 250 MILLIGRAM, ONCE A DAY
     Route: 065
  41. CLOZAPINE TABLETS [Suspect]
     Active Substance: CLOZAPINE
     Dosage: 0.5 DF, Q3W (25MG (0.5 TABLET AT 7+9+12+14+19 O^CLOCK)
     Route: 048
  42. OMEPRAZOLE. [Suspect]
     Active Substance: OMEPRAZOLE
     Indication: PREMEDICATION
     Dosage: 40 MILLIGRAM, ONCE A DAY
     Route: 048
  43. EXELON [Suspect]
     Active Substance: RIVASTIGMINE TARTRATE
     Indication: PARKINSON^S DISEASE
     Dosage: 3 MG, BID
     Route: 065
  44. STALEVO [Suspect]
     Active Substance: CARBIDOPA\ENTACAPONE\LEVODOPA
     Dosage: 50 MILLIGRAM, TID
     Route: 065
     Dates: end: 200909
  45. CARBIDOPA;LEVODOPA [Suspect]
     Active Substance: CARBIDOPA\LEVODOPA
     Indication: PRODUCT USED FOR UNKNOWN INDICATION
     Dosage: 93.75 MILLIGRAM, ONCE A DAY
     Route: 065
  46. LEVODOPA [Suspect]
     Active Substance: LEVODOPA
     Dosage: 1 MILLIGRAM, ONCE A DAY
     Route: 048
  47. LEVODOPA [Suspect]
     Active Substance: LEVODOPA
     Dosage: 3 MILLIGRAM, TWO TIMES A DAY
     Route: 065
  48. NEOSTIGMINE METHYLSULFATE. [Concomitant]
     Active Substance: NEOSTIGMINE METHYLSULFATE
     Indication: PRODUCT USED FOR UNKNOWN INDICATION
     Dosage: UNK
     Route: 065
  49. METOCLOPRAMIDE. [Concomitant]
     Active Substance: METOCLOPRAMIDE
     Indication: PRODUCT USED FOR UNKNOWN INDICATION
     Dosage: UNK
     Route: 042
  50. ISICOM [Concomitant]
     Active Substance: CARBIDOPA\LEVODOPA
     Indication: PRODUCT USED FOR UNKNOWN INDICATION
     Dosage: 25 MILLIGRAM, ONCE A DAY
     Route: 065

REACTIONS (15)
  - Pancreatitis [Fatal]
  - Ileus [Fatal]
  - Bladder disorder [Fatal]
  - Urinary retention [Fatal]
  - Death [Fatal]
  - Dementia [Fatal]
  - Faecaloma [Fatal]
  - Abdominal pain [Fatal]
  - Nausea [Fatal]
  - Vascular encephalopathy [Fatal]
  - Abdominal distension [Fatal]
  - White blood cell count increased [Fatal]
  - Subileus [Fatal]
  - Abdominal tenderness [Fatal]
  - Gastrointestinal sounds abnormal [Fatal]

NARRATIVE: CASE EVENT DATE: 2009
